FAERS Safety Report 19519014 (Version 1)
Quarter: 2021Q3

REPORT INFORMATION
  Report Type: Spontaneous
  Country: US (occurrence: US)
  Receive Date: 20210711
  Receipt Date: 20210711
  Transmission Date: 20211014
  Serious: Yes (Hospitalization, Disabling)
  Sender: FDA-Public Use
  Company Number: None

PATIENT
  Age: 67 Year
  Sex: Female
  Weight: 58.5 kg

DRUGS (9)
  1. LIPITOR [Concomitant]
     Active Substance: ATORVASTATIN CALCIUM
  2. VITAMIN D [Concomitant]
     Active Substance: VITAMIN D NOS
  3. RECLAST [Suspect]
     Active Substance: ZOLEDRONIC ACID
     Indication: OSTEOPOROSIS
  4. BIOTIN [Concomitant]
     Active Substance: BIOTIN
  5. SENIOR VITAMINS [Concomitant]
  6. PROZAC [Concomitant]
     Active Substance: FLUOXETINE HYDROCHLORIDE
  7. FISH OIL [Concomitant]
     Active Substance: FISH OIL
  8. PROBIOTICS [Concomitant]
     Active Substance: PROBIOTICS NOS
  9. TURMERIC CRANBERRY PILLS [Concomitant]

REACTIONS (3)
  - Tooth extraction [None]
  - Femur fracture [None]
  - Bone loss [None]

NARRATIVE: CASE EVENT DATE: 20150621
